FAERS Safety Report 23101264 (Version 1)
Quarter: 2023Q4

REPORT INFORMATION
  Report Type: Spontaneous
  Country: CN (occurrence: CN)
  Receive Date: 20231024
  Receipt Date: 20231024
  Transmission Date: 20240109
  Serious: Yes (Other)
  Sender: FDA-Public Use
  Company Number: CN-PFIZER INC-PV202300174410

PATIENT
  Age: 24 Year
  Sex: Female

DRUGS (1)
  1. CARBOPROST TROMETHAMINE [Suspect]
     Active Substance: CARBOPROST TROMETHAMINE
     Indication: Uterine hypotonus
     Dosage: 250 UG, 1X/DAY
     Route: 030
     Dates: start: 20231019, end: 20231019

REACTIONS (2)
  - Rash erythematous [Recovering/Resolving]
  - Rubella [Recovering/Resolving]

NARRATIVE: CASE EVENT DATE: 20231019
